FAERS Safety Report 4545753-7 (Version None)
Quarter: 2005Q1

REPORT INFORMATION
  Report Type: 
  Country: None (occurrence: None)
  Receive Date: 20050104
  Receipt Date: 20050104
  Transmission Date: 20050727
  Serious: Yes (Other)
  Sender: FDA-Public Use
  Company Number: None

PATIENT
  Age: 38 Year
  Sex: Male
  Weight: 81.6475 kg

DRUGS (1)
  1. HT KIT HIV HOME TEST KIT [Suspect]

REACTIONS (3)
  - EMOTIONAL DISTRESS [None]
  - HIV TEST FALSE POSITIVE [None]
  - PHARMACEUTICAL PRODUCT COMPLAINT [None]
